FAERS Safety Report 8279300-3 (Version None)
Quarter: 2012Q2

REPORT INFORMATION
  Report Type: 
  Country: None (occurrence: None)
  Receive Date: 20120412
  Receipt Date: 20120327
  Transmission Date: 20120825
  Serious: Yes (Other)
  Sender: FDA-Public Use
  Company Number: CHPA2012CA006118

PATIENT
  Sex: Female

DRUGS (1)
  1. LAMISIL [Suspect]
     Dosage: UNK, UNK
     Dates: start: 20120301, end: 20120301

REACTIONS (7)
  - ACCIDENTAL EXPOSURE [None]
  - DYSPEPSIA [None]
  - BURNING SENSATION [None]
  - APHAGIA [None]
  - HYPOAESTHESIA [None]
  - HEADACHE [None]
  - GLOSSODYNIA [None]
